FAERS Safety Report 5554280-X (Version None)
Quarter: 2007Q4

REPORT INFORMATION
  Report Type: 
  Country: None (occurrence: None)
  Receive Date: 20071213
  Receipt Date: 20071207
  Transmission Date: 20080405
  Serious: Yes (Hospitalization)
  Sender: FDA-Public Use
  Company Number: B0493720A

PATIENT
  Age: 90 Year
  Sex: Male
  Weight: 50 kg

DRUGS (16)
  1. ARIXTRA [Suspect]
     Indication: THROMBOSIS PROPHYLAXIS
     Dosage: 2.5MG PER DAY
     Route: 058
     Dates: start: 20071025, end: 20071026
  2. VOLTAREN [Suspect]
     Indication: ANALGESIA
     Dosage: 50MG PER DAY
     Route: 054
     Dates: start: 20071024, end: 20071026
  3. FIRSTCIN [Concomitant]
     Indication: INFECTION PROPHYLAXIS
     Dosage: 2G PER DAY
     Route: 042
     Dates: start: 20071024, end: 20071029
  4. UNKNOWN DRUG [Concomitant]
     Indication: ANAESTHESIA PROCEDURE
     Dosage: 3MG PER DAY
     Route: 042
     Dates: start: 20071024, end: 20071024
  5. DIPRIVAN [Concomitant]
     Indication: ANAESTHESIA PROCEDURE
     Dosage: 5ML PER DAY
     Route: 042
     Dates: start: 20071024, end: 20071024
  6. FENTANYL [Concomitant]
     Indication: ANAESTHESIA PROCEDURE
     Dosage: 2ML PER DAY
     Route: 042
     Dates: start: 20071024, end: 20071024
  7. ATROPINE SULFATE [Concomitant]
     Indication: ANAESTHESIA PROCEDURE
     Dosage: 2ML PER DAY
     Route: 042
     Dates: start: 20071024, end: 20071024
  8. UNKNOWN MEDICATION [Concomitant]
     Indication: ANAESTHESIA PROCEDURE
     Dosage: 4ML PER DAY
     Route: 042
     Dates: start: 20071024, end: 20071024
  9. FERROMIA [Concomitant]
     Dosage: 100MG PER DAY
     Route: 048
  10. RABEPRAZOLE SODIUM [Concomitant]
     Indication: GASTRIC ULCER
     Dosage: 10MG PER DAY
     Route: 048
  11. ZYLORIC [Concomitant]
     Indication: GOUT
     Dosage: 200MG PER DAY
     Route: 048
  12. DIART [Concomitant]
     Dosage: 60MG PER DAY
     Route: 048
  13. NU-LOTAN [Concomitant]
     Dosage: 50MG PER DAY
     Route: 048
  14. VOLTAREN [Concomitant]
     Indication: ANALGESIA
     Dosage: 75MG PER DAY
     Route: 048
  15. SELBEX [Concomitant]
     Indication: GASTRITIS
     Dosage: 100MG PER DAY
     Route: 048
  16. BIOFERMIN [Concomitant]
     Dosage: 1.5G PER DAY
     Route: 048
     Dates: start: 20071019, end: 20071026

REACTIONS (5)
  - ANAEMIA [None]
  - BLOOD PRESSURE DECREASED [None]
  - DIARRHOEA [None]
  - LOWER GASTROINTESTINAL HAEMORRHAGE [None]
  - MELAENA [None]
